FAERS Safety Report 20362613 (Version 1)
Quarter: 2022Q1

REPORT INFORMATION
  Report Type: Spontaneous
  Country: US (occurrence: None)
  Receive Date: 20220120
  Receipt Date: 20220120
  Transmission Date: 20220423
  Serious: No
  Sender: FDA-Public Use
  Company Number: None

PATIENT
  Age: 37 Year
  Sex: Female
  Weight: 61.2 kg

DRUGS (3)
  1. EQUATE CAPSAICIN PAIN RELIEVING [Suspect]
     Active Substance: CAPSAICIN
     Indication: Myalgia
     Dosage: OTHER QUANTITY : 1 PATCH(ES);?FREQUENCY : TWICE A DAY;?
     Route: 062
  2. VITAMINS [Concomitant]
     Active Substance: VITAMINS
  3. SUBUTEC [Concomitant]

REACTIONS (3)
  - Skin burning sensation [None]
  - Blister [None]
  - Erythema [None]

NARRATIVE: CASE EVENT DATE: 20200120
